FAERS Safety Report 8209124-4 (Version None)
Quarter: 2012Q1

REPORT INFORMATION
  Report Type: 
  Country: None (occurrence: None)
  Receive Date: 20120314
  Receipt Date: 20120302
  Transmission Date: 20120608
  Serious: Yes (Other)
  Sender: FDA-Public Use
  Company Number: NL-BAYER-2012-021778

PATIENT
  Sex: Female

DRUGS (1)
  1. MIRENA [Suspect]
     Dosage: UNK
     Dates: start: 20100101

REACTIONS (6)
  - DEVICE EXPULSION [None]
  - PROCEDURAL PAIN [None]
  - PRODUCT SHAPE ISSUE [None]
  - UTERINE PERFORATION [None]
  - COMPLICATION OF DEVICE REMOVAL [None]
  - DEVICE BREAKAGE [None]
